FAERS Safety Report 5074910-9 (Version None)
Quarter: 2006Q3

REPORT INFORMATION
  Report Type: 
  Country: None (occurrence: None)
  Receive Date: 20060804
  Receipt Date: 20060724
  Transmission Date: 20061208
  Serious: Yes (Life-Threatening, Hospitalization, Other)
  Sender: FDA-Public Use
  Company Number: 2006091457

PATIENT
  Age: 59 Year
  Sex: Female
  Weight: 54.4316 kg

DRUGS (2)
  1. XANAX [Suspect]
     Indication: ANXIETY
     Dosage: 1.5 MG (0.5 MG, 3 IN 1 D)
     Dates: start: 20000201, end: 20060719
  2. XANAX [Suspect]
     Indication: PANIC ATTACK
     Dosage: 1.5 MG (0.5 MG, 3 IN 1 D)
     Dates: start: 20000201, end: 20060719

REACTIONS (8)
  - BLOOD PRESSURE INCREASED [None]
  - DEPRESSION [None]
  - DRUG WITHDRAWAL SYNDROME [None]
  - INCORRECT DOSE ADMINISTERED [None]
  - ORAL INTAKE REDUCED [None]
  - SCREAMING [None]
  - SLEEP DISORDER [None]
  - SUICIDAL IDEATION [None]
